FAERS Safety Report 7679726-2 (Version None)
Quarter: 2011Q3

REPORT INFORMATION
  Report Type: 
  Country: None (occurrence: None)
  Receive Date: 20110812
  Receipt Date: 20110805
  Transmission Date: 20111222
  Serious: No
  Sender: FDA-Public Use
  Company Number: US-JNJFOC-20110804892

PATIENT
  Sex: Female
  Weight: 115.67 kg

DRUGS (11)
  1. FISH OIL [Concomitant]
     Indication: NUTRITIONAL SUPPORT
     Route: 048
  2. FENTANYL [Suspect]
     Indication: OSTEOARTHRITIS
     Route: 062
     Dates: start: 20110727
  3. FLEXERIL [Concomitant]
     Indication: MUSCLE SPASMS
     Route: 048
     Dates: start: 20100101
  4. LISINOPRIL AND HYDROCHLOROTHIAZIDE [Concomitant]
     Indication: HYPERTENSION
     Dosage: 10/12.5 MG DAILY
     Route: 048
     Dates: start: 20101101
  5. FENTANYL [Suspect]
     Indication: NERVE INJURY
     Route: 062
     Dates: start: 20110727
  6. FENTANYL [Suspect]
     Indication: INTERVERTEBRAL DISC DEGENERATION
     Route: 062
     Dates: start: 20110727
  7. NEURONTIN [Concomitant]
     Indication: NEURALGIA
     Route: 048
     Dates: start: 20080101
  8. MULTIPLE VITAMIN [Concomitant]
     Indication: NUTRITIONAL SUPPORT
     Route: 048
  9. SENNA [Concomitant]
     Indication: SLEEP DISORDER
     Dosage: AS NECESSARY
     Route: 048
  10. KLONOPIN [Concomitant]
     Indication: ANXIETY
     Route: 048
     Dates: start: 20110615
  11. VERAPAMIL [Concomitant]
     Indication: HYPERTENSION
     Route: 048

REACTIONS (4)
  - PRODUCT QUALITY ISSUE [None]
  - WITHDRAWAL SYNDROME [None]
  - WRONG TECHNIQUE IN DRUG USAGE PROCESS [None]
  - DERMATITIS CONTACT [None]
